FAERS Safety Report 6450711-1 (Version None)
Quarter: 2009Q4

REPORT INFORMATION
  Report Type: 
  Country: None (occurrence: None)
  Receive Date: 20091112
  Receipt Date: 20090827
  Transmission Date: 20100525
  Serious: Yes (Hospitalization)
  Sender: FDA-Public Use
  Company Number: 2009BH013353

PATIENT
  Age: 62 Year
  Sex: Female
  Weight: 62.3 kg

DRUGS (8)
  1. PHENERGAN HCL [Suspect]
     Indication: NAUSEA
     Dosage: 125 MG ; 1X; IV
     Route: 042
     Dates: start: 20090503, end: 20090503
  2. PHENERGAN HCL [Suspect]
     Indication: VOMITING
     Dosage: 125 MG ; 1X; IV
     Route: 042
     Dates: start: 20090503, end: 20090503
  3. OXYCONTIN [Concomitant]
  4. SYNTHROID [Concomitant]
  5. LASIX [Concomitant]
  6. PROVENTIL [Concomitant]
  7. NEBULIZER [Concomitant]
  8. OXYGEN [Concomitant]

REACTIONS (2)
  - INJECTION SITE PAIN [None]
  - THROMBOSIS [None]
